FAERS Safety Report 9408674 (Version 1)
Quarter: 2013Q3

REPORT INFORMATION
  Report Type: Spontaneous
  Country: IT (occurrence: IT)
  Receive Date: 20130712
  Receipt Date: 20130712
  Transmission Date: 20140515
  Serious: Yes (Other)
  Sender: FDA-Public Use
  Company Number: IT-PFIZER INC-2013204041

PATIENT
  Age: 3 Year
  Sex: Male

DRUGS (1)
  1. IBUPROFEN [Suspect]
     Indication: PYREXIA
     Dosage: 10 MG/KG, 3X/DAY
     Route: 048

REACTIONS (3)
  - Gastritis haemorrhagic [Recovered/Resolved]
  - Obstruction gastric [Recovered/Resolved]
  - Gastric ulcer [Recovered/Resolved]
